FAERS Safety Report 23118609 (Version 2)
Quarter: 2024Q1

REPORT INFORMATION
  Report Type: Spontaneous
  Country: US (occurrence: US)
  Receive Date: 20231028
  Receipt Date: 20240213
  Transmission Date: 20240410
  Serious: No
  Sender: FDA-Public Use
  Company Number: US-ABBVIE-5465600

PATIENT
  Age: 61 Year
  Weight: 94 kg

DRUGS (1)
  1. BOTOX [Suspect]
     Active Substance: ONABOTULINUMTOXINA
     Indication: Hyperhidrosis
     Dosage: TIME INTERVAL: AS NECESSARY: FREQUENCY TEXT: SINGLE USE?100 UNITS
     Route: 065
     Dates: start: 20230913, end: 20230913

REACTIONS (4)
  - Drug ineffective [Unknown]
  - Drug resistance [Unknown]
  - Skin odour abnormal [Unknown]
  - Therapeutic product effect decreased [Unknown]
